FAERS Safety Report 23503725 (Version 1)
Quarter: 2024Q1

REPORT INFORMATION
  Report Type: Spontaneous
  Country: US (occurrence: US)
  Receive Date: 20240209
  Receipt Date: 20240209
  Transmission Date: 20240410
  Serious: Yes (Other)
  Sender: FDA-Public Use
  Company Number: US-AMNEAL PHARMACEUTICALS-2024-AMRX-00298

PATIENT
  Age: 71 Year
  Sex: Female
  Weight: 61.2 kg

DRUGS (2)
  1. ESTRADIOL TRANSDERMAL SYSTEM [Suspect]
     Active Substance: ESTRADIOL
     Indication: Blood cholesterol increased
     Dosage: 0.05 MILLIGRAM FOR 2 WEEKS (CHANGING PATCHES EVERY 4 DAYS)
     Route: 062
  2. COMBIPATCH [Suspect]
     Active Substance: ESTRADIOL\NORETHINDRONE ACETATE
     Indication: Blood cholesterol increased
     Dosage: 0.05/0.25 MILLIGRAM
     Route: 062

REACTIONS (3)
  - Postmenopausal haemorrhage [Unknown]
  - Heavy menstrual bleeding [Unknown]
  - Off label use [Unknown]
